FAERS Safety Report 11924959 (Version 2)
Quarter: 2016Q1

REPORT INFORMATION
  Report Type: Spontaneous
  Country: JP (occurrence: JP)
  Receive Date: 20160118
  Receipt Date: 20160127
  Transmission Date: 20160526
  Serious: Yes (Hospitalization)
  Sender: FDA-Public Use
  Company Number: JP-ASTRAZENECA-2016SE05281

PATIENT
  Age: 30799 Day
  Sex: Male

DRUGS (12)
  1. BAYASPIRIN [Concomitant]
     Active Substance: ASPIRIN
     Indication: ANGINA PECTORIS
     Route: 048
  2. SENNOSIDE [Concomitant]
     Active Substance: SENNOSIDES
     Indication: CONSTIPATION
     Route: 048
     Dates: start: 20150427
  3. CRAVIT [Concomitant]
     Active Substance: LEVOFLOXACIN
     Indication: CELLULITIS
     Route: 041
     Dates: start: 20150518
  4. MEROPEN [Suspect]
     Active Substance: MEROPENEM
     Indication: CELLULITIS
     Route: 041
     Dates: start: 20150426, end: 20150525
  5. PARIET [Concomitant]
     Active Substance: RABEPRAZOLE SODIUM
     Route: 048
  6. MEROPEN [Suspect]
     Active Substance: MEROPENEM
     Indication: CELLULITIS
     Route: 041
     Dates: start: 20150413, end: 20150422
  7. CUBICIN [Concomitant]
     Active Substance: DAPTOMYCIN
     Indication: CELLULITIS
     Route: 042
     Dates: start: 20150417
  8. MEROPEN [Suspect]
     Active Substance: MEROPENEM
     Indication: CELLULITIS
     Route: 041
     Dates: start: 20150407, end: 20150412
  9. MINOCYCLINE HYDROCHLORIDE. [Concomitant]
     Active Substance: MINOCYCLINE HYDROCHLORIDE
     Indication: CELLULITIS
     Route: 041
     Dates: start: 20150413, end: 20150414
  10. PLAVIX [Concomitant]
     Active Substance: CLOPIDOGREL BISULFATE
     Indication: ANGINA PECTORIS
     Route: 048
  11. VANCOMYCIN HYDROCHLORIDE. [Concomitant]
     Active Substance: VANCOMYCIN HYDROCHLORIDE
     Indication: CELLULITIS
     Route: 041
     Dates: start: 20150415, end: 20150417
  12. FLORINEF ACETATE [Concomitant]
     Active Substance: FLUDROCORTISONE ACETATE
     Indication: CEREBRAL SALT-WASTING SYNDROME
     Route: 048
     Dates: start: 20150519, end: 20150610

REACTIONS (2)
  - Pneumonia [Unknown]
  - Lung infiltration [Recovering/Resolving]

NARRATIVE: CASE EVENT DATE: 20150507
